FAERS Safety Report 18478719 (Version 3)
Quarter: 2021Q1

REPORT INFORMATION
  Report Type: Other
  Country: US (occurrence: US)
  Receive Date: 20201109
  Receipt Date: 20210106
  Transmission Date: 20210419
  Serious: Yes (Other)
  Sender: FDA-Public Use
  Company Number: US-ROCHE-2185287

PATIENT
  Age: 50 Year
  Sex: Female

DRUGS (28)
  1. XOLAIR [Suspect]
     Active Substance: OMALIZUMAB
  2. ASMANEX [Concomitant]
     Active Substance: MOMETASONE FUROATE
  3. ALBUTEROL SULFATE. [Concomitant]
     Active Substance: ALBUTEROL SULFATE
     Dosage: 4?6 HOURS
  4. SUDAFED [Concomitant]
     Active Substance: PSEUDOEPHEDRINE HYDROCHLORIDE
     Route: 048
  5. XOLAIR [Suspect]
     Active Substance: OMALIZUMAB
     Indication: ASTHMA
     Route: 058
  6. XOLAIR [Suspect]
     Active Substance: OMALIZUMAB
     Route: 058
     Dates: start: 20090924
  7. BENADRYL [Concomitant]
     Active Substance: DIPHENHYDRAMINE HYDROCHLORIDE
     Route: 048
  8. NEILMED SINUS RINSE [Concomitant]
     Active Substance: SODIUM BICARBONATE\SODIUM CHLORIDE
     Route: 045
  9. PEPCID [Concomitant]
     Active Substance: FAMOTIDINE
     Route: 048
  10. VENTOLIN HFA [Concomitant]
     Active Substance: ALBUTEROL SULFATE
  11. PULMICORT TURBUHALER [Concomitant]
     Active Substance: BUDESONIDE
  12. BLACK COHOSH [Concomitant]
     Active Substance: BLACK COHOSH
     Route: 048
  13. XOLAIR [Suspect]
     Active Substance: OMALIZUMAB
  14. NASONEX [Concomitant]
     Active Substance: MOMETASONE FUROATE
  15. AZITHROMYCIN ANHYDROUS. [Concomitant]
     Active Substance: AZITHROMYCIN ANHYDROUS
     Route: 048
  16. PROMETHAZINE [Concomitant]
     Active Substance: PROMETHAZINE HYDROCHLORIDE
     Route: 048
  17. VITAMIN C [Concomitant]
     Active Substance: ASCORBIC ACID
     Route: 048
  18. XOLAIR [Suspect]
     Active Substance: OMALIZUMAB
     Route: 058
  19. XOLAIR [Suspect]
     Active Substance: OMALIZUMAB
  20. VITAMIN B?COMPLEX [Concomitant]
     Active Substance: DEXPANTHENOL\NIACINAMIDE\PYRIDOXINE HYDROCHLORIDE\RIBOFLAVIN 5^-PHOSPHATE SODIUM\THIAMINE HYDROCHLORIDE
     Route: 048
  21. VITAMIN D3 [Concomitant]
     Active Substance: CHOLECALCIFEROL
     Route: 048
  22. ZYRTEC (UNITED STATES) [Concomitant]
     Route: 048
  23. XOPENEX HFA [Concomitant]
     Active Substance: LEVALBUTEROL TARTRATE
     Dosage: 4?6 HRS
  24. BUDESONIDE. [Concomitant]
     Active Substance: BUDESONIDE
  25. FLUTICASONE. [Concomitant]
     Active Substance: FLUTICASONE
  26. EPIPEN [Concomitant]
     Active Substance: EPINEPHRINE
  27. MOTRIN [Concomitant]
     Active Substance: IBUPROFEN
     Route: 048
  28. BETAMETHASONE. [Concomitant]
     Active Substance: BETAMETHASONE
     Route: 061

REACTIONS (6)
  - Chronic sinusitis [Unknown]
  - Fatigue [Unknown]
  - Arthralgia [Unknown]
  - Dry skin [Unknown]
  - Headache [Unknown]
  - Anaphylactic reaction [Unknown]

NARRATIVE: CASE EVENT DATE: 20201029
